FAERS Safety Report 14245563 (Version 1)
Quarter: 2017Q4

REPORT INFORMATION
  Report Type: Spontaneous
  Country: IT (occurrence: IT)
  Receive Date: 20171203
  Receipt Date: 20171203
  Transmission Date: 20180321
  Serious: Yes (Hospitalization, Other)
  Sender: FDA-Public Use
  Company Number: IT-ALEMBIC PHARMACUETICALS LIMITED-2017SCAL000940

PATIENT

DRUGS (3)
  1. LITHIUM CARBONATE. [Suspect]
     Active Substance: LITHIUM CARBONATE
     Indication: BIPOLAR DISORDER
     Dosage: 450 MG, BID
  2. OLMESARTAN MEDOXOMIL. [Suspect]
     Active Substance: OLMESARTAN MEDOXOMIL
     Indication: ESSENTIAL HYPERTENSION
     Dosage: 20 MG, UNK
  3. RAMIPRIL/HYDROCHLOORTHIAZIDE [Suspect]
     Active Substance: HYDROCHLOROTHIAZIDE\RAMIPRIL
     Indication: HYPERTENSION
     Dosage: UNK

REACTIONS (17)
  - Speech disorder [Recovering/Resolving]
  - Clonus [Recovering/Resolving]
  - Dehydration [Recovering/Resolving]
  - Drug ineffective [Unknown]
  - Asterixis [Recovering/Resolving]
  - Antipsychotic drug level increased [Recovering/Resolving]
  - Intentional self-injury [Unknown]
  - Acute kidney injury [Recovering/Resolving]
  - Somnolence [Recovering/Resolving]
  - Toxicity to various agents [Recovering/Resolving]
  - Epilepsy [Recovering/Resolving]
  - Tremor [Recovering/Resolving]
  - Confusional state [Recovering/Resolving]
  - Gaze palsy [Recovering/Resolving]
  - Dyskinesia [Recovering/Resolving]
  - Disorientation [Recovering/Resolving]
  - Apathy [Recovering/Resolving]
